FAERS Safety Report 10102077 (Version 4)
Quarter: 2014Q2

REPORT INFORMATION
  Report Type: Spontaneous
  Country: US (occurrence: US)
  Receive Date: 20140424
  Receipt Date: 20140530
  Transmission Date: 20141212
  Serious: Yes (Other)
  Sender: FDA-Public Use
  Company Number: US-009507513-1404USA010606

PATIENT
  Age: 22 Year
  Sex: Female
  Weight: 154.2 kg

DRUGS (4)
  1. IMPLANON [Suspect]
     Indication: CONTRACEPTION
     Dosage: 1 ROD
     Route: 059
     Dates: start: 20130124, end: 20140424
  2. IMPLANON [Suspect]
     Dosage: UNK
     Route: 059
  3. TRAMADOL HYDROCHLORIDE [Concomitant]
  4. FLEXERIL [Concomitant]

REACTIONS (7)
  - General anaesthesia [Recovered/Resolved]
  - Device difficult to use [Recovered/Resolved]
  - Discomfort [Recovered/Resolved]
  - Medical device complication [Recovered/Resolved]
  - Headache [Recovered/Resolved]
  - Nausea [Recovered/Resolved]
  - Implant site pain [Recovered/Resolved]
